FAERS Safety Report 5093786-7 (Version None)
Quarter: 2006Q3

REPORT INFORMATION
  Report Type: 
  Country: None (occurrence: None)
  Receive Date: 20060728
  Receipt Date: 20060516
  Transmission Date: 20061208
  Serious: No
  Sender: FDA-Public Use
  Company Number: 253375

PATIENT
  Age: 43 Year
  Sex: Female

DRUGS (4)
  1. LEVEMIR [Suspect]
     Indication: INSULIN-REQUIRING TYPE II DIABETES MELLITUS
     Dosage: 100 IU, QD, SUBCUTANEOUS
     Route: 058
     Dates: start: 20060301
  2. HUMALOG /00030501/ (INSULIN) [Concomitant]
  3. HYDROCHLOROTHIAZIDE [Concomitant]
  4. ZETIA [Concomitant]

REACTIONS (2)
  - INJECTION SITE URTICARIA [None]
  - OEDEMA PERIPHERAL [None]
